FAERS Safety Report 18072231 (Version 6)
Quarter: 2020Q4

REPORT INFORMATION
  Report Type: Report from Study
  Country: None (occurrence: US)
  Receive Date: 20200727
  Receipt Date: 20201030
  Transmission Date: 20210113
  Serious: Yes (Hospitalization, Other)
  Sender: FDA-Public Use
  Company Number: US-ABBVIE-20K-163-3497395-00

PATIENT
  Age: 63 Year
  Sex: Male
  Weight: 107.14 kg

DRUGS (46)
  1. LISINOPRIL. [Concomitant]
     Active Substance: LISINOPRIL
     Indication: CARDIAC DISORDER
  2. PREVACID [Concomitant]
     Active Substance: LANSOPRAZOLE
     Indication: RHEUMATOID ARTHRITIS
  3. ACIDOPHILUS [Concomitant]
     Active Substance: LACTOBACILLUS ACIDOPHILUS
     Indication: NEURALGIA
  4. VITAMIN D3 [Concomitant]
     Active Substance: CHOLECALCIFEROL
     Indication: NEURALGIA
  5. VITAMIN B12 [Concomitant]
     Active Substance: CYANOCOBALAMIN
     Indication: COVID-19 PROPHYLAXIS
  6. METFORMIN [Concomitant]
     Active Substance: METFORMIN HYDROCHLORIDE
     Indication: DIABETES MELLITUS
  7. SALMON OIL [Concomitant]
     Active Substance: FISH OIL
     Indication: HYPERTENSION
  8. ACIDOPHILUS [Concomitant]
     Active Substance: LACTOBACILLUS ACIDOPHILUS
     Indication: RHEUMATOID ARTHRITIS
  9. VITAMIN D3 [Concomitant]
     Active Substance: CHOLECALCIFEROL
     Indication: CARDIAC DISORDER
  10. VITAMIN D3 [Concomitant]
     Active Substance: CHOLECALCIFEROL
     Indication: COVID-19 PROPHYLAXIS
  11. GLIPIZIDE. [Concomitant]
     Active Substance: GLIPIZIDE
     Indication: DIABETES MELLITUS
  12. VICTOZA [Concomitant]
     Active Substance: LIRAGLUTIDE
     Indication: DIABETES MELLITUS
  13. CARVEDILOL. [Concomitant]
     Active Substance: CARVEDILOL
     Indication: CARDIAC DISORDER
  14. PREVACID [Concomitant]
     Active Substance: LANSOPRAZOLE
     Indication: GASTROOESOPHAGEAL REFLUX DISEASE
  15. SALMON OIL [Concomitant]
     Active Substance: FISH OIL
     Indication: NEURALGIA
  16. ACIDOPHILUS [Concomitant]
     Active Substance: LACTOBACILLUS ACIDOPHILUS
     Indication: PROBIOTIC THERAPY
  17. VITAMIN D3 [Concomitant]
     Active Substance: CHOLECALCIFEROL
     Indication: COVID-19 PROPHYLAXIS
  18. VITAMIN B12 [Concomitant]
     Active Substance: CYANOCOBALAMIN
     Indication: COVID-19 PROPHYLAXIS
  19. HUMIRA [Suspect]
     Active Substance: ADALIMUMAB
     Indication: RHEUMATOID ARTHRITIS
     Route: 058
     Dates: start: 201810, end: 20200420
  20. LISINOPRIL. [Concomitant]
     Active Substance: LISINOPRIL
     Indication: NEURALGIA
  21. VITAMIN D3 [Concomitant]
     Active Substance: CHOLECALCIFEROL
     Indication: RHEUMATOID ARTHRITIS
  22. VITAMIN B12 [Concomitant]
     Active Substance: CYANOCOBALAMIN
     Indication: CARDIAC DISORDER
  23. AMBIEN [Concomitant]
     Active Substance: ZOLPIDEM TARTRATE
     Indication: PRODUCT USED FOR UNKNOWN INDICATION
  24. FUROSEMIDE. [Concomitant]
     Active Substance: FUROSEMIDE
     Indication: NEURALGIA
  25. LISINOPRIL. [Concomitant]
     Active Substance: LISINOPRIL
     Indication: CARDIAC DISORDER
  26. PREVACID [Concomitant]
     Active Substance: LANSOPRAZOLE
     Indication: CARDIAC DISORDER
  27. VITAMIN B12 [Concomitant]
     Active Substance: CYANOCOBALAMIN
     Indication: GASTROOESOPHAGEAL REFLUX DISEASE
  28. OXYCODONE [Concomitant]
     Active Substance: OXYCODONE
     Indication: NEURALGIA
  29. CARVEDILOL. [Concomitant]
     Active Substance: CARVEDILOL
     Indication: NEURALGIA
  30. SALMON OIL [Concomitant]
     Active Substance: FISH OIL
     Indication: CARDIAC DISORDER
  31. SALMON OIL [Concomitant]
     Active Substance: FISH OIL
     Indication: RHEUMATOID ARTHRITIS
  32. SALMON OIL [Concomitant]
     Active Substance: FISH OIL
     Indication: GASTROOESOPHAGEAL REFLUX DISEASE
  33. VITAMIN B12 [Concomitant]
     Active Substance: CYANOCOBALAMIN
     Indication: SUPPLEMENTATION THERAPY
  34. HUMIRA [Suspect]
     Active Substance: ADALIMUMAB
     Route: 058
     Dates: start: 20200513, end: 20200618
  35. HUMIRA [Suspect]
     Active Substance: ADALIMUMAB
     Route: 058
     Dates: start: 202007
  36. OXYCODONE [Concomitant]
     Active Substance: OXYCODONE
     Indication: NEURALGIA
  37. CARVEDILOL. [Concomitant]
     Active Substance: CARVEDILOL
     Indication: CARDIAC DISORDER
  38. ACIDOPHILUS [Concomitant]
     Active Substance: LACTOBACILLUS ACIDOPHILUS
     Indication: CARDIAC DISORDER
  39. ACIDOPHILUS [Concomitant]
     Active Substance: LACTOBACILLUS ACIDOPHILUS
     Indication: GASTROOESOPHAGEAL REFLUX DISEASE
  40. VITAMIN D3 [Concomitant]
     Active Substance: CHOLECALCIFEROL
     Indication: GASTROOESOPHAGEAL REFLUX DISEASE
  41. VITAMIN B12 [Concomitant]
     Active Substance: CYANOCOBALAMIN
     Indication: RHEUMATOID ARTHRITIS
  42. FUROSEMIDE. [Concomitant]
     Active Substance: FUROSEMIDE
     Indication: NEURALGIA
  43. PREVACID [Concomitant]
     Active Substance: LANSOPRAZOLE
     Indication: NEURALGIA
  44. PREVACID [Concomitant]
     Active Substance: LANSOPRAZOLE
     Indication: GASTROOESOPHAGEAL REFLUX DISEASE
  45. VITAMIN D3 [Concomitant]
     Active Substance: CHOLECALCIFEROL
     Indication: COVID-19 PROPHYLAXIS
  46. VITAMIN B12 [Concomitant]
     Active Substance: CYANOCOBALAMIN
     Indication: NEURALGIA

REACTIONS (8)
  - Sepsis [Recovered/Resolved]
  - Arthralgia [Not Recovered/Not Resolved]
  - Blister [Recovered/Resolved]
  - Limb injury [Recovering/Resolving]
  - Influenza [Recovered/Resolved]
  - Nerve compression [Recovered/Resolved]
  - Myocardial infarction [Recovered/Resolved]
  - Impaired healing [Recovering/Resolving]

NARRATIVE: CASE EVENT DATE: 2019
